FAERS Safety Report 9885501 (Version 1)
Quarter: 2014Q1

REPORT INFORMATION
  Report Type: Spontaneous
  Country: BR (occurrence: BR)
  Receive Date: 20140210
  Receipt Date: 20140210
  Transmission Date: 20141002
  Serious: Yes (Other)
  Sender: FDA-Public Use
  Company Number: BR-PFIZER INC-2014031889

PATIENT
  Age: 62 Year
  Sex: Female
  Weight: 44 kg

DRUGS (6)
  1. XALATAN [Suspect]
     Indication: GLAUCOMA
     Dosage: 1 DROP IN EACH EYE (1.5UG), 1X/DAY
     Route: 047
     Dates: start: 20130103, end: 20130106
  2. CALCIUM W/VITAMIN D NOS [Concomitant]
     Indication: OSTEOPOROSIS
     Dosage: 1 UNIT, 2X/DAY
     Dates: start: 201312
  3. DEPURA [Concomitant]
     Indication: VITAMIN SUPPLEMENTATION
     Dosage: 10 GTT IN THE MORNING, 1X/DAY
     Dates: start: 2013
  4. OMEGA 3 [Concomitant]
     Indication: VITAMIN SUPPLEMENTATION
     Dosage: 1 UNIT, 2X/DAY
     Dates: start: 201310
  5. OSTEONUTRI [Concomitant]
     Indication: OSTEOPOROSIS
     Dosage: 1 CAPSULE, DAILY
     Dates: start: 2013, end: 201310
  6. SIMVASTATIN [Concomitant]
     Indication: BLOOD CHOLESTEROL INCREASED
     Dosage: 1 UNIT (AT NIGHT), 1X/DAY
     Dates: start: 201309

REACTIONS (6)
  - Memory impairment [Not Recovered/Not Resolved]
  - Breast mass [Not Recovered/Not Resolved]
  - Breast cyst [Not Recovered/Not Resolved]
  - Eye irritation [Unknown]
  - Ocular hyperaemia [Unknown]
  - Product formulation issue [Unknown]
